FAERS Safety Report 24724976 (Version 2)
Quarter: 2025Q1

REPORT INFORMATION
  Report Type: Spontaneous
  Country: FR (occurrence: FR)
  Receive Date: 20241212
  Receipt Date: 20250102
  Transmission Date: 20250409
  Serious: Yes (Other)
  Sender: TEVA
  Company Number: FR-TEVA-VS-3273539

PATIENT
  Age: 28 Year
  Sex: Female

DRUGS (2)
  1. OCTREOTIDE [Suspect]
     Active Substance: OCTREOTIDE
     Indication: Albright^s disease
     Route: 065
  2. LANREOTIDE [Suspect]
     Active Substance: LANREOTIDE
     Indication: Albright^s disease
     Route: 065

REACTIONS (6)
  - Abdominal pain [Unknown]
  - Asthenia [Unknown]
  - Headache [Unknown]
  - Syncope [Unknown]
  - Diarrhoea [Unknown]
  - Nausea [Unknown]
